FAERS Safety Report 9218203 (Version 1)
Quarter: 2013Q2

REPORT INFORMATION
  Report Type: Spontaneous
  Country: US (occurrence: US)
  Receive Date: 20130408
  Receipt Date: 20130408
  Transmission Date: 20140414
  Serious: Yes (Other)
  Sender: FDA-Public Use
  Company Number: US-TARO-2013P1004173

PATIENT
  Age: 72 Year
  Sex: Female
  Weight: 147.42 kg

DRUGS (5)
  1. WARFARIN SODIUM TABLETS USP 5MG [Suspect]
     Route: 048
     Dates: start: 201210, end: 20130311
  2. SYNTHROID [Concomitant]
  3. VITAMIN D [Concomitant]
  4. VITAMIN E [Concomitant]
  5. CALCIUM [Concomitant]

REACTIONS (3)
  - Arthralgia [Recovered/Resolved]
  - Local swelling [Recovered/Resolved]
  - Antiphospholipid syndrome [Not Recovered/Not Resolved]
